FAERS Safety Report 15074208 (Version 2)
Quarter: 2018Q3

REPORT INFORMATION
  Report Type: Other
  Country: ES (occurrence: ES)
  Receive Date: 20180627
  Receipt Date: 20180710
  Transmission Date: 20181010
  Serious: Yes (Hospitalization, Other)
  Sender: FDA-Public Use
  Company Number: ES-MACLEODS PHARMACEUTICALS US LTD-MAC2018014370

PATIENT

DRUGS (3)
  1. CLOPIDOGREL [Suspect]
     Active Substance: CLOPIDOGREL BISULFATE
     Indication: PRODUCT USED FOR UNKNOWN INDICATION
     Dosage: UNK, MEDICATION ERROR
     Route: 048
     Dates: start: 20180525, end: 20180601
  2. OMEPRAZOLE. [Interacting]
     Active Substance: OMEPRAZOLE
     Indication: PRODUCT USED FOR UNKNOWN INDICATION
     Dosage: UNK
     Route: 048
     Dates: start: 20180525, end: 20180601
  3. ADIRO 100 MG [Interacting]
     Active Substance: ASPIRIN
     Indication: PRODUCT USED FOR UNKNOWN INDICATION
     Dosage: UNK, MEDICATION ERROR, FICTITIOUS DATE OF BEGINNING OF TTO, COMPRESSED
     Route: 048
     Dates: start: 2017

REACTIONS (4)
  - Drug interaction [Recovered/Resolved]
  - Drug dose omission [Recovered/Resolved]
  - Product substitution error [Recovered/Resolved]
  - Peptic ulcer haemorrhage [Recovered/Resolved]

NARRATIVE: CASE EVENT DATE: 20180525
